FAERS Safety Report 12741186 (Version 2)
Quarter: 2016Q4

REPORT INFORMATION
  Report Type: Report from Study
  Country: CA (occurrence: CA)
  Receive Date: 20160914
  Receipt Date: 20161026
  Transmission Date: 20170207
  Serious: Yes (Hospitalization)
  Sender: FDA-Public Use
  Company Number: PHHY2016CA060659

PATIENT
  Age: 15 Year
  Sex: Male

DRUGS (2)
  1. 6-MERCAPTOPURINE [Concomitant]
     Active Substance: MERCAPTOPURINE
     Indication: PRODUCT USED FOR UNKNOWN INDICATION
     Dosage: UNK
     Route: 065
  2. GLEEVEC [Suspect]
     Active Substance: IMATINIB MESYLATE
     Indication: ACUTE LYMPHOCYTIC LEUKAEMIA
     Dosage: 500 MG, QD
     Route: 048
     Dates: start: 2013

REACTIONS (3)
  - Full blood count decreased [Unknown]
  - Eye infection viral [Unknown]
  - Nausea [Unknown]

NARRATIVE: CASE EVENT DATE: 20160818
